FAERS Safety Report 5494973-6 (Version None)
Quarter: 2007Q4

REPORT INFORMATION
  Report Type: 
  Country: None (occurrence: None)
  Receive Date: 20071024
  Receipt Date: 20071018
  Transmission Date: 20080405
  Serious: Yes (Death)
  Sender: FDA-Public Use
  Company Number: B0492342A

PATIENT
  Age: 86 Year
  Sex: Male

DRUGS (6)
  1. AMOXICILLIN AND CLAVULANATE POTASSIUM [Suspect]
     Indication: RESPIRATORY TRACT INFECTION BACTERIAL
     Route: 048
     Dates: start: 20070416, end: 20070420
  2. CIPROFLOXACIN [Suspect]
     Indication: RESPIRATORY TRACT INFECTION BACTERIAL
     Dosage: 1000MG PER DAY
     Route: 048
     Dates: start: 20070416, end: 20070420
  3. ENALAPRIL MALEATE [Suspect]
     Dosage: 5MG PER DAY
     Route: 048
     Dates: end: 20070420
  4. TROMALYT [Suspect]
     Dosage: 300MG PER DAY
     Route: 048
     Dates: end: 20070420
  5. XUMADOL [Suspect]
     Indication: PAIN
     Route: 048
     Dates: end: 20070420
  6. SEGURIL [Suspect]
     Dosage: 40MG PER DAY
     Route: 048
     Dates: end: 20070420

REACTIONS (3)
  - CARDIAC FAILURE CONGESTIVE [None]
  - DRUG INTERACTION [None]
  - RENAL FAILURE ACUTE [None]
